FAERS Safety Report 17583190 (Version 2)
Quarter: 2020Q3

REPORT INFORMATION
  Report Type: Other
  Country: EC (occurrence: EC)
  Receive Date: 20200326
  Receipt Date: 20200816
  Transmission Date: 20201102
  Serious: No
  Sender: FDA-Public Use
  Company Number: EC-ROCHE-2463660

PATIENT
  Sex: Female

DRUGS (1)
  1. BONDRONAT [Suspect]
     Active Substance: IBANDRONATE SODIUM
     Indication: OSTEOPENIA
     Route: 042

REACTIONS (2)
  - Bone pain [Unknown]
  - Pain [Unknown]
